FAERS Safety Report 15166278 (Version 1)
Quarter: 2018Q3

REPORT INFORMATION
  Report Type: Spontaneous
  Country: US (occurrence: US)
  Receive Date: 20180719
  Receipt Date: 20180719
  Transmission Date: 20181010
  Serious: No
  Sender: FDA-Public Use
  Company Number: US-OTSUKA-2018_010814

PATIENT
  Sex: Female

DRUGS (4)
  1. REXULTI [Suspect]
     Active Substance: BREXPIPRAZOLE
     Indication: ADJUVANT THERAPY
     Dosage: UNK
     Route: 065
  2. ABILIFY [Suspect]
     Active Substance: ARIPIPRAZOLE
     Indication: MAJOR DEPRESSION
  3. REXULTI [Suspect]
     Active Substance: BREXPIPRAZOLE
     Indication: MAJOR DEPRESSION
  4. ABILIFY [Suspect]
     Active Substance: ARIPIPRAZOLE
     Indication: ADJUVANT THERAPY
     Dosage: UNK
     Route: 065

REACTIONS (2)
  - Hunger [Unknown]
  - Weight increased [Unknown]
